FAERS Safety Report 7720762-5 (Version None)
Quarter: 2011Q3

REPORT INFORMATION
  Report Type: 
  Country: None (occurrence: None)
  Receive Date: 20110831
  Receipt Date: 20110824
  Transmission Date: 20111222
  Serious: Yes (Other)
  Sender: FDA-Public Use
  Company Number: GB-ASTELLAS-2011EU004281

PATIENT
  Sex: Female

DRUGS (2)
  1. PROTOPIC [Suspect]
     Indication: DERMATITIS ATOPIC
     Dosage: 0.1 %, OTHER
     Route: 061
     Dates: start: 20110301, end: 20110601
  2. DOUBLEBASE [Concomitant]
     Indication: DERMATITIS ATOPIC
     Dosage: UNK
     Route: 061

REACTIONS (4)
  - AGEUSIA [None]
  - HYPOAESTHESIA [None]
  - SKIN IRRITATION [None]
  - ANOSMIA [None]
